FAERS Safety Report 9548390 (Version 1)
Quarter: 2013Q3

REPORT INFORMATION
  Report Type: Spontaneous
  Country: MY (occurrence: MY)
  Receive Date: 20130924
  Receipt Date: 20130924
  Transmission Date: 20140515
  Serious: Yes (Other)
  Sender: FDA-Public Use
  Company Number: PHHY2013MY105752

PATIENT
  Sex: Female

DRUGS (1)
  1. SANDOSTATIN LAR [Suspect]
     Indication: ACROMEGALY
     Dosage: UNK UKN, UNK

REACTIONS (4)
  - Liver disorder [Unknown]
  - Cholelithiasis [Unknown]
  - Cholecystitis [Unknown]
  - Hyperbilirubinaemia [Unknown]
